FAERS Safety Report 5284942-3 (Version None)
Quarter: 2007Q1

REPORT INFORMATION
  Report Type: 
  Country: None (occurrence: None)
  Receive Date: 20061229
  Receipt Date: 20060914
  Transmission Date: 20070707
  Serious: Yes (Other)
  Sender: FDA-Public Use
  Company Number: 2006UW18024

PATIENT
  Age: 55 Year
  Sex: Male
  Weight: 92.532 kg

DRUGS (12)
  1. CRESTOR [Suspect]
     Indication: BLOOD CHOLESTEROL INCREASED
     Dosage: 10 MG PO
     Route: 048
  2. CLARITIN [Concomitant]
  3. SEROQUEL [Concomitant]
  4. ATIVAN [Concomitant]
  5. ADDERALL XR 10 [Concomitant]
  6. LISINOPRIL [Concomitant]
  7. NIFEDIPINE [Concomitant]
  8. CYCLOBENAZAPRINE [Concomitant]
  9. PROZAC [Concomitant]
  10. DOCUSATE SODIUM [Concomitant]
  11. HYDROCODONE [Concomitant]
  12. ACIPHEX [Concomitant]

REACTIONS (6)
  - CHEST PAIN [None]
  - DYSPNOEA [None]
  - JOINT SWELLING [None]
  - MUSCULOSKELETAL CHEST PAIN [None]
  - OEDEMA PERIPHERAL [None]
  - PAIN [None]
